FAERS Safety Report 6164482-X (Version None)
Quarter: 2009Q2

REPORT INFORMATION
  Report Type: 
  Country: None (occurrence: None)
  Receive Date: 20090421
  Receipt Date: 20090407
  Transmission Date: 20091009
  Serious: Yes (Other)
  Sender: FDA-Public Use
  Company Number: 2009SS000029

PATIENT
  Age: 51 Year
  Sex: Male

DRUGS (5)
  1. MYOBLOC [Suspect]
     Indication: DRUG USE FOR UNKNOWN INDICATION
     Dosage: ; IM
     Dates: start: 20080101, end: 20080101
  2. CLONAZEPAM [Concomitant]
  3. SIMVASTATIN [Concomitant]
  4. FUROSEMIDE [Concomitant]
  5. BUPROPION HCL [Concomitant]

REACTIONS (2)
  - DRY SKIN [None]
  - THROAT TIGHTNESS [None]
